FAERS Safety Report 20631381 (Version 1)
Quarter: 2022Q1

REPORT INFORMATION
  Report Type: Spontaneous
  Country: CN (occurrence: CN)
  Receive Date: 20220324
  Receipt Date: 20220324
  Transmission Date: 20220424
  Serious: Yes (Hospitalization, Other)
  Sender: FDA-Public Use
  Company Number: CN-BAYER-2022A039175

PATIENT
  Age: 71 Year
  Sex: Male
  Weight: 55 kg

DRUGS (24)
  1. AVELOX [Suspect]
     Active Substance: MOXIFLOXACIN HYDROCHLORIDE
     Indication: Pneumonia
     Dosage: 0.4 G, QD
     Route: 048
     Dates: start: 20220211, end: 20220212
  2. ERTAPENEM [Suspect]
     Active Substance: ERTAPENEM
     Indication: Anti-infective therapy
     Dosage: 0.5 G, QD, PUMPING
     Route: 041
     Dates: start: 20220216, end: 20220301
  3. INSULIN GLARGINE [Concomitant]
     Active Substance: INSULIN GLARGINE
     Indication: Diabetes mellitus
     Dosage: 12 U, QD
     Route: 058
     Dates: start: 20220211, end: 20220315
  4. CLOPIDOGREL BISULFATE [Concomitant]
     Active Substance: CLOPIDOGREL BISULFATE
     Indication: Antiplatelet therapy
     Dosage: 75 MG, QD
     Route: 048
     Dates: start: 20220211, end: 20220315
  5. ATORVASTATIN CALCIUM [Concomitant]
     Active Substance: ATORVASTATIN CALCIUM
     Indication: Lipids abnormal
     Dosage: 20 MG, QD
     Route: 048
     Dates: start: 20220211, end: 20220315
  6. AMINO ACIDS [Concomitant]
     Active Substance: AMINO ACIDS
     Indication: Nutritional supplementation
     Dosage: 4 DF, TID
     Route: 048
     Dates: start: 20220211, end: 20220315
  7. NIAO DU QING [Concomitant]
     Indication: Detoxification
     Dosage: 5 G
     Route: 048
     Dates: start: 20220211, end: 20220308
  8. NIAO DU QING [Concomitant]
     Indication: Renal disorder prophylaxis
  9. LERCANIDIPINE HYDROCHLORIDE [Concomitant]
     Active Substance: LERCANIDIPINE HYDROCHLORIDE
     Indication: Hypertension
     Dosage: 10 MG, BID
     Route: 048
     Dates: start: 20220211, end: 20220315
  10. RABEPRAZOLE SODIUM [Concomitant]
     Active Substance: RABEPRAZOLE SODIUM
     Indication: Antacid therapy
     Dosage: 20 MG, QD
     Route: 048
     Dates: start: 20220211, end: 20220315
  11. TEPRENONE [Concomitant]
     Active Substance: TEPRENONE
     Indication: Gastrointestinal disorder prophylaxis
     Dosage: 50 MG, TID
     Route: 048
     Dates: start: 20220211, end: 20220308
  12. PANCREATIN [Concomitant]
     Active Substance: PANCRELIPASE
     Indication: Dyspepsia
     Dosage: 0.3 G, TID
     Route: 048
     Dates: start: 20220211, end: 20220315
  13. CITICOLINE SODIUM [Concomitant]
     Active Substance: CITICOLINE SODIUM
     Indication: Cerebrovascular disorder
     Dosage: 0.2 G, TID
     Route: 048
     Dates: start: 20220211, end: 20220315
  14. CITICOLINE SODIUM [Concomitant]
     Active Substance: CITICOLINE SODIUM
     Indication: Metabolic disorder
  15. METHYLCOBALAMIN [Concomitant]
     Active Substance: METHYLCOBALAMIN
     Dosage: 0.5 MG, TID
     Route: 048
     Dates: start: 20220211, end: 20220315
  16. CEFOPERAZONE SODIUM SULBACTAM SODIUM [Concomitant]
     Indication: Pneumonia
     Dosage: 1.5 G, TID
     Route: 041
     Dates: start: 20220212, end: 20220216
  17. SALMONCAL [Concomitant]
     Indication: Hypercalcaemia
     Dosage: 300 U, QD, PUMPING
     Route: 050
     Dates: start: 20220211, end: 20220214
  18. MEDIUM AND LONG CHAIN FAT EMULSION [Concomitant]
     Indication: Nutritional supplementation
     Dosage: 250 ML, QD
     Route: 041
     Dates: start: 20220213, end: 20220213
  19. MEDIUM AND LONG CHAIN FAT EMULSION [Concomitant]
     Indication: Asthenia
  20. AMINO ACIDS, SOURCE UNSPECIFIED [Concomitant]
     Active Substance: AMINO ACIDS, SOURCE UNSPECIFIED
     Indication: Nutritional supplementation
     Dosage: 250 ML, QD
     Route: 041
     Dates: start: 20220212, end: 20220212
  21. AMINO ACIDS, SOURCE UNSPECIFIED [Concomitant]
     Active Substance: AMINO ACIDS, SOURCE UNSPECIFIED
     Indication: Asthenia
  22. COMPOUND AMINO ACID GRANULES (9AA) [Concomitant]
     Indication: Nutritional supplementation
     Dosage: 250 ML, QD
     Route: 041
     Dates: start: 20220214, end: 20220214
  23. COMPOUND AMINO ACID GRANULES (9AA) [Concomitant]
     Indication: Asthenia
  24. ROXADUSTAT [Concomitant]
     Active Substance: ROXADUSTAT
     Indication: Anaemia
     Dosage: 100 MG, QOD
     Route: 048
     Dates: start: 20220214, end: 20220307

REACTIONS (8)
  - Mental disorder [Recovering/Resolving]
  - Pancreatitis acute [None]
  - Sepsis [None]
  - Agitation [Recovering/Resolving]
  - Poor quality sleep [Recovering/Resolving]
  - Confusional state [Recovering/Resolving]
  - Hallucination [Recovering/Resolving]
  - Aggression [Recovering/Resolving]

NARRATIVE: CASE EVENT DATE: 20220212
